FAERS Safety Report 5261272-7 (Version None)
Quarter: 2007Q1

REPORT INFORMATION
  Report Type: 
  Country: None (occurrence: None)
  Receive Date: 20070309
  Receipt Date: 20070301
  Transmission Date: 20070707
  Serious: Yes (Other)
  Sender: FDA-Public Use
  Company Number: GB-PFIZER INC-2007016839

PATIENT
  Sex: Female

DRUGS (1)
  1. LUSTRAL [Suspect]
     Route: 048

REACTIONS (2)
  - METRORRHAGIA [None]
  - OVARIAN CYST [None]
